FAERS Safety Report 5564974-8 (Version None)
Quarter: 2007Q4

REPORT INFORMATION
  Report Type: 
  Country: None (occurrence: None)
  Receive Date: 20071218
  Receipt Date: 20071213
  Transmission Date: 20080405
  Serious: Yes (Other)
  Sender: FDA-Public Use
  Company Number: B0500022A

PATIENT
  Age: 45 Year
  Sex: Male

DRUGS (3)
  1. RANITIDINE HCL [Suspect]
     Indication: ILL-DEFINED DISORDER
     Dosage: 300MG PER DAY
     Route: 048
  2. CO-APROVEL [Concomitant]
     Dosage: 300MG PER DAY
  3. INIPOMP [Concomitant]
     Dosage: 40MG PER DAY

REACTIONS (2)
  - INFERTILITY MALE [None]
  - SPERMATOZOA ABNORMAL [None]
